FAERS Safety Report 11167422 (Version 1)
Quarter: 2015Q2

REPORT INFORMATION
  Report Type: Spontaneous
  Country: JP (occurrence: JP)
  Receive Date: 20150605
  Receipt Date: 20150605
  Transmission Date: 20150821
  Serious: Yes (Hospitalization)
  Sender: FDA-Public Use
  Company Number: JP-009507513-1506JPN000327

PATIENT
  Age: 60 Year
  Sex: Male

DRUGS (6)
  1. ZETIA [Suspect]
     Active Substance: EZETIMIBE
     Dosage: 10 MG, QD
     Route: 048
  2. URSO [Suspect]
     Active Substance: URSODIOL
     Dosage: DAILY DOSE UNKNOWN
     Route: 048
  3. BAYASPIRIN [Suspect]
     Active Substance: ASPIRIN
     Dosage: DAILY DOSE UNKNOWN
     Route: 048
  4. TRICOR [Suspect]
     Active Substance: FENOFIBRATE
     Dosage: DAILY DOSE UNKNOWN
     Route: 048
  5. EQUA [Suspect]
     Active Substance: VILDAGLIPTIN
     Dosage: DAILY DOSE UNKNOWN
     Route: 048
  6. OLMETEC [Suspect]
     Active Substance: OLMESARTAN MEDOXOMIL
     Dosage: DAILY DOSE UNKNOWN
     Route: 048

REACTIONS (2)
  - Adverse event [Unknown]
  - Neutrophil count decreased [Unknown]
